FAERS Safety Report 8835724 (Version 1)
Quarter: 2012Q4

REPORT INFORMATION
  Report Type: 
  Country: ES (occurrence: ES)
  Receive Date: 20121011
  Receipt Date: 20121011
  Transmission Date: 20130627
  Serious: Yes (Hospitalization)
  Sender: FDA-Public Use
  Company Number: ES-009507513-1210ESP002779

PATIENT
  Age: 25 Year
  Sex: Female

DRUGS (3)
  1. SYCREST [Suspect]
     Dosage: 58 DF, Once
     Route: 060
     Dates: start: 20121002, end: 20121002
  2. SEROPRAM [Suspect]
     Dosage: 20 DF, Once
     Route: 060
     Dates: start: 20121002, end: 20121002
  3. LORAZEPAM [Suspect]
     Dosage: 20 DF, Once
     Route: 048
     Dates: start: 20121002, end: 20121002

REACTIONS (1)
  - Overdose [Unknown]
